FAERS Safety Report 4261827-2 (Version None)
Quarter: 2004Q1

REPORT INFORMATION
  Report Type: 
  Country: None (occurrence: None)
  Receive Date: 20040102
  Receipt Date: 20031222
  Transmission Date: 20041129
  Serious: Yes (Hospitalization, Other)
  Sender: FDA-Public Use
  Company Number: 200320655US

PATIENT
  Sex: Female

DRUGS (6)
  1. DOCETAXEL [Suspect]
     Indication: LEIOMYOSARCOMA METASTATIC
     Route: 042
     Dates: start: 20031118, end: 20031118
  2. GEMCITABINE [Suspect]
     Indication: LEIOMYOSARCOMA METASTATIC
     Route: 042
     Dates: start: 20031111, end: 20031118
  3. AVAPRO [Concomitant]
     Indication: HYPERTENSION
     Route: 048
     Dates: end: 20031011
  4. CLARINEX [Concomitant]
  5. CALCIUM [Concomitant]
     Dates: end: 20031011
  6. PROPOXYPHENE HCL [Concomitant]
     Indication: PAIN

REACTIONS (7)
  - CHEST PAIN [None]
  - COUGH [None]
  - HAEMOGLOBIN DECREASED [None]
  - NEUTROPHIL COUNT INCREASED [None]
  - PHARYNGOLARYNGEAL PAIN [None]
  - PYREXIA [None]
  - WHITE BLOOD CELL COUNT INCREASED [None]
